FAERS Safety Report 4726855-9 (Version None)
Quarter: 2005Q3

REPORT INFORMATION
  Report Type: 
  Country: None (occurrence: None)
  Receive Date: 20050726
  Receipt Date: 20050715
  Transmission Date: 20060218
  Serious: Yes (Hospitalization)
  Sender: FDA-Public Use
  Company Number: HQWYE247518JUL05

PATIENT
  Age: 30 Year
  Sex: Female

DRUGS (11)
  1. RAPAMUNE [Suspect]
     Indication: PROPHYLAXIS AGAINST TRANSPLANT REJECTION
     Dosage: 6 + 2MG 1X PER 1 DAY ORAL
     Route: 048
     Dates: start: 20050614, end: 20050614
  2. RAPAMUNE [Suspect]
     Indication: PROPHYLAXIS AGAINST TRANSPLANT REJECTION
     Dosage: 6 + 2MG 1X PER 1 DAY ORAL
     Route: 048
     Dates: start: 20050615
  3. PREDNISONE [Concomitant]
  4. NYSTATIN [Concomitant]
  5. SULFAMETHOXAZOLE + TRIMETHOPRIM [Concomitant]
  6. OMEPRAZOLE [Concomitant]
  7. NORFLOXACIN [Concomitant]
  8. ASPIRIN [Concomitant]
  9. ATENOLOL [Concomitant]
  10. FUROSEMIDE (FUROSEMIDE) [Concomitant]
  11. CYCLOSPORINE [Concomitant]

REACTIONS (4)
  - BLOOD CREATININE INCREASED [None]
  - DIABETES MELLITUS [None]
  - HYPERGLYCAEMIA [None]
  - POST PROCEDURAL COMPLICATION [None]
